FAERS Safety Report 10010151 (Version 1)
Quarter: 2014Q1

REPORT INFORMATION
  Report Type: Spontaneous
  Country: US (occurrence: US)
  Receive Date: 20140312
  Receipt Date: 20140312
  Transmission Date: 20141002
  Serious: No
  Sender: FDA-Public Use
  Company Number: US-INCYTE CORPORATION-2013IN001645

PATIENT
  Sex: Female

DRUGS (8)
  1. JAKAFI [Suspect]
     Dosage: 20 MG, BID
     Route: 048
     Dates: start: 20130516, end: 20130722
  2. HYDROCHLOROTHIAZIDE [Concomitant]
  3. PROPRANOLOL [Concomitant]
  4. COLACE [Concomitant]
  5. ASPIRIN [Concomitant]
  6. Q-PAP [Concomitant]
  7. TYLENOL [Concomitant]
  8. PREVACID [Concomitant]

REACTIONS (3)
  - Diarrhoea [Unknown]
  - Discomfort [Unknown]
  - Local swelling [Unknown]
